FAERS Safety Report 14780873 (Version 2)
Quarter: 2018Q4

REPORT INFORMATION
  Report Type: Spontaneous
  Country: US (occurrence: US)
  Receive Date: 20180419
  Receipt Date: 20181016
  Transmission Date: 20190204
  Serious: Yes (Hospitalization, Other)
  Sender: FDA-Public Use
  Company Number: US-GLAXOSMITHKLINE-US2018065878

PATIENT
  Sex: Female

DRUGS (13)
  1. OXYCONTIN [Concomitant]
     Active Substance: OXYCODONE HYDROCHLORIDE
  2. ZOLPIDEM TARTRATE. [Concomitant]
     Active Substance: ZOLPIDEM TARTRATE
  3. LAMICTAL XR [Suspect]
     Active Substance: LAMOTRIGINE
     Indication: SEIZURE
     Dosage: 150 MG, TID
     Dates: start: 200610
  4. LAMICTAL XR [Suspect]
     Active Substance: LAMOTRIGINE
     Indication: EPILEPSY
  5. ARMOUR THYROID [Concomitant]
     Active Substance: THYROID, PORCINE
  6. MORPHINE ER [Concomitant]
     Active Substance: MORPHINE
  7. PREMARIN [Concomitant]
     Active Substance: ESTROGENS, CONJUGATED
  8. KEPPRA [Concomitant]
     Active Substance: LEVETIRACETAM
  9. KEPPRA [Suspect]
     Active Substance: LEVETIRACETAM
     Indication: PRODUCT USED FOR UNKNOWN INDICATION
     Dosage: UNK
     Dates: start: 2017
  10. BACLOFEN. [Concomitant]
     Active Substance: BACLOFEN
  11. MELOXICAM. [Concomitant]
     Active Substance: MELOXICAM
  12. CLONAZEPAM. [Concomitant]
     Active Substance: CLONAZEPAM
  13. TRAZODONE [Concomitant]
     Active Substance: TRAZODONE HYDROCHLORIDE

REACTIONS (11)
  - Petit mal epilepsy [Recovered/Resolved]
  - Abdominal pain upper [Recovered/Resolved]
  - Cyclic vomiting syndrome [Recovered/Resolved]
  - Amnesia [Recovered/Resolved]
  - Atonic seizures [Recovered/Resolved]
  - Fall [Recovered/Resolved]
  - Head injury [Recovered/Resolved]
  - Myoclonic epilepsy [Recovered/Resolved]
  - Fatigue [Recovering/Resolving]
  - Pneumonia [Unknown]
  - Confusional state [Recovered/Resolved]
